FAERS Safety Report 5699189-6 (Version None)
Quarter: 2008Q2

REPORT INFORMATION
  Report Type: 
  Country: None (occurrence: None)
  Receive Date: 20080407
  Receipt Date: 20080407
  Transmission Date: 20081010
  Serious: Yes (Other)
  Sender: FDA-Public Use
  Company Number: None

PATIENT
  Age: 59 Year
  Sex: Male
  Weight: 87 kg

DRUGS (4)
  1. VELCADE [Suspect]
     Indication: MULTIPLE MYELOMA
     Dosage: 1.0MG/M2 WEEKLY FOR 4
     Dates: start: 20080110, end: 20080325
  2. CCI-779 (TEMSIROLIMUS) [Suspect]
     Indication: MULTIPLE MYELOMA
     Dosage: 10MG/M2 WEEKLY
     Dates: start: 20080110, end: 20080325
  3. ACYCLOVIR [Concomitant]
  4. PERIDEX [Concomitant]

REACTIONS (1)
  - PLATELET COUNT DECREASED [None]
